FAERS Safety Report 4582555-X (Version None)
Quarter: 2005Q1

REPORT INFORMATION
  Report Type: 
  Country: None (occurrence: None)
  Receive Date: 20050211
  Receipt Date: 20050211
  Transmission Date: 20050727
  Serious: Yes (Life-Threatening, Disabling)
  Sender: FDA-Public Use
  Company Number: None

PATIENT
  Age: 29 Year
  Sex: Male
  Weight: 95.2554 kg

DRUGS (2)
  1. TRANCOPAL [Suspect]
     Indication: PHOBIA
     Dosage: 200 MG, DAILY , ORALLY
     Route: 048
     Dates: start: 19900101, end: 19900301
  2. OVER-THE-COUNTER DRUGS AGAINST SINUSITIS AND HEADACHE [Concomitant]

REACTIONS (7)
  - CATATONIA [None]
  - CONFUSIONAL STATE [None]
  - DELUSION [None]
  - FEELING ABNORMAL [None]
  - HALLUCINATION [None]
  - PSYCHIATRIC SYMPTOM [None]
  - SCHIZOPHRENIA, PARANOID TYPE [None]
